FAERS Safety Report 6306792-9 (Version None)
Quarter: 2009Q3

REPORT INFORMATION
  Report Type: 
  Country: None (occurrence: None)
  Receive Date: 20090812
  Receipt Date: 20090730
  Transmission Date: 20100115
  Serious: Yes (Other)
  Sender: FDA-Public Use
  Company Number: FR-JNJFOC-20090802983

PATIENT
  Sex: Male

DRUGS (9)
  1. TOPALGIC [Suspect]
     Indication: OSTEOARTHRITIS
     Route: 048
     Dates: start: 20090702, end: 20090715
  2. RIFADIN [Suspect]
     Indication: OSTEOARTHRITIS
     Route: 048
     Dates: start: 20090630, end: 20090715
  3. FUSIDIC ACID [Suspect]
     Indication: OSTEOARTHRITIS
     Route: 048
  4. PROGRAF [Concomitant]
     Route: 065
  5. CELLCEPT [Concomitant]
     Route: 065
  6. TIENAM [Concomitant]
     Route: 065
  7. LACTEOL FORT [Concomitant]
     Route: 065
  8. METOCLOPRAMIDE [Concomitant]
     Route: 065
  9. CHLORPROMAZINE [Concomitant]
     Route: 065

REACTIONS (2)
  - JAUNDICE [None]
  - VOMITING [None]
